FAERS Safety Report 12084971 (Version 1)
Quarter: 2016Q1

REPORT INFORMATION
  Report Type: Spontaneous
  Country: US (occurrence: US)
  Receive Date: 20160217
  Receipt Date: 20160217
  Transmission Date: 20160526
  Serious: No
  Sender: FDA-Public Use
  Company Number: US-PERRIGO-15US013663

PATIENT
  Age: 39 Year
  Sex: Female

DRUGS (2)
  1. TRETINOIN. [Suspect]
     Active Substance: TRETINOIN
     Indication: SKIN WRINKLING
     Dosage: SMALL AMOUNT, NIGHTLY
     Route: 061
     Dates: start: 20151120
  2. BENZOYL PEROXIDE. [Suspect]
     Active Substance: BENZOYL PEROXIDE
     Indication: PRODUCT USED FOR UNKNOWN INDICATION
     Dosage: UNKNOWN, NIGHTLY
     Route: 061

REACTIONS (2)
  - Application site pain [Recovered/Resolved]
  - Skin tightness [Recovering/Resolving]

NARRATIVE: CASE EVENT DATE: 20151120
